FAERS Safety Report 6151910-9 (Version None)
Quarter: 2009Q2

REPORT INFORMATION
  Report Type: 
  Country: None (occurrence: None)
  Receive Date: 20090410
  Receipt Date: 20081223
  Transmission Date: 20091009
  Serious: Yes (Life-Threatening, Hospitalization, Disabling, Congenital Anomaly, Other)
  Sender: FDA-Public Use
  Company Number: US-MERCK-0812ZAF00009

PATIENT
  Age: 21 Year
  Sex: Male
  Weight: 108 kg

DRUGS (2)
  1. SINGULAIR [Suspect]
     Indication: HYPERSENSITIVITY
     Route: 048
  2. SINGULAIR [Suspect]
     Indication: ASTHMA EXERCISE INDUCED
     Route: 048

REACTIONS (15)
  - AGITATION [None]
  - ANGER [None]
  - ATTENTION DEFICIT/HYPERACTIVITY DISORDER [None]
  - BRADYCARDIA [None]
  - DYSPNOEA [None]
  - FATIGUE [None]
  - HEART RATE DECREASED [None]
  - JOINT SPRAIN [None]
  - LOSS OF CONSCIOUSNESS [None]
  - MUSCULAR WEAKNESS [None]
  - OPEN WOUND [None]
  - PALLOR [None]
  - SCAB [None]
  - SICK SINUS SYNDROME [None]
  - SLEEP APNOEA SYNDROME [None]
